FAERS Safety Report 5004257-8 (Version None)
Quarter: 2006Q2

REPORT INFORMATION
  Report Type: 
  Country: None (occurrence: None)
  Receive Date: 20060517
  Receipt Date: 20050112
  Transmission Date: 20061013
  Serious: Yes (Hospitalization)
  Sender: FDA-Public Use
  Company Number: US-MERCK-0501USA01918

PATIENT
  Age: 75 Year
  Sex: Male
  Weight: 86 kg

DRUGS (9)
  1. VIOXX [Suspect]
     Indication: ARTHRITIS
     Route: 048
     Dates: start: 19990101, end: 20040901
  2. LOPRESSOR [Concomitant]
     Route: 048
  3. ASPIRIN [Concomitant]
     Route: 048
  4. PRAVACHOL [Concomitant]
     Route: 048
  5. AVANDIA [Concomitant]
     Route: 048
  6. PROSCAR [Concomitant]
     Route: 048
  7. ZOLOFT [Concomitant]
     Route: 048
  8. AVAPRO [Concomitant]
     Route: 048
  9. DETROL LA [Concomitant]
     Route: 048

REACTIONS (26)
  - AGITATION POSTOPERATIVE [None]
  - ALANINE AMINOTRANSFERASE INCREASED [None]
  - AORTIC ARTERIOSCLEROSIS [None]
  - AORTIC STENOSIS [None]
  - AORTIC VALVE CALCIFICATION [None]
  - AORTIC VALVE INCOMPETENCE [None]
  - ARTERIAL DISORDER [None]
  - ARTHRALGIA [None]
  - ATRIAL HYPERTROPHY [None]
  - CAROTID ARTERY STENOSIS [None]
  - CONFUSION POSTOPERATIVE [None]
  - DIABETES MELLITUS NON-INSULIN-DEPENDENT [None]
  - DYSARTHRIA [None]
  - DYSPNOEA [None]
  - EPICONDYLITIS [None]
  - HEART RATE DECREASED [None]
  - HYPERCHOLESTEROLAEMIA [None]
  - HYPOTENSION [None]
  - MITRAL VALVE INCOMPETENCE [None]
  - MYOCARDIAL INFARCTION [None]
  - PLEURAL EFFUSION [None]
  - PULMONARY HYPERTENSION [None]
  - RENAL FAILURE CHRONIC [None]
  - THROMBOCYTOPENIA [None]
  - TRICUSPID VALVE INCOMPETENCE [None]
  - VENTRICULAR DYSFUNCTION [None]
